FAERS Safety Report 8677198 (Version 3)
Quarter: 2012Q4

REPORT INFORMATION
  Report Type: Report from Study
  Country: JP (occurrence: JP)
  Receive Date: 20120723
  Receipt Date: 20121228
  Transmission Date: 20130627
  Serious: Yes (Other)
  Sender: FDA-Public Use
  Company Number: JP-VERTEX PHARMACEUTICALS INC.-AE-2012-010403

PATIENT
  Age: 47 Year
  Sex: Male

DRUGS (7)
  1. VX-950 (TELAPREVIR) [Suspect]
     Indication: CHRONIC HEPATITIS C
     Dosage: 2250 mg, qd
     Route: 048
     Dates: start: 20120130, end: 20120425
  2. RIBAVIRIN [Suspect]
     Indication: CHRONIC HEPATITIS C
     Dosage: 800 mg, qd
     Route: 048
     Dates: start: 20120130, end: 20120327
  3. RIBAVIRIN [Suspect]
     Dosage: 600 mg, qd
     Route: 048
     Dates: start: 20120328, end: 20120718
  4. PEGINTERFERON ALFA-2B [Suspect]
     Indication: CHRONIC HEPATITIS C
     Dosage: 100 ?g,qw
     Route: 058
     Dates: start: 20120130, end: 20120718
  5. MUCOSTA [Concomitant]
     Dosage: 300 mg, qd
     Route: 048
     Dates: start: 20120207
  6. MARZULENE-S [Concomitant]
     Dosage: 2.01 g, qd
     Route: 048
     Dates: start: 20120207
  7. GASTER [Concomitant]
     Dosage: 20 mg, qd
     Route: 048
     Dates: start: 20120207

REACTIONS (1)
  - White blood cell count decreased [Recovered/Resolved]
